FAERS Safety Report 24268440 (Version 2)
Quarter: 2024Q3

REPORT INFORMATION
  Report Type: Spontaneous
  Country: JP (occurrence: None)
  Receive Date: 20240830
  Receipt Date: 20240902
  Transmission Date: 20241017
  Serious: Yes (Death, Hospitalization)
  Sender: ASTRAZENECA
  Company Number: 2024A193404

PATIENT
  Sex: Female

DRUGS (1)
  1. TAGRISSO [Suspect]
     Active Substance: OSIMERTINIB
     Indication: Non-small cell lung cancer
     Route: 048
     Dates: start: 20240717, end: 20240820

REACTIONS (3)
  - Interstitial lung disease [Fatal]
  - Platelet count decreased [Fatal]
  - Disseminated intravascular coagulation [Fatal]

NARRATIVE: CASE EVENT DATE: 20240820
